FAERS Safety Report 7519789-8 (Version None)
Quarter: 2011Q2

REPORT INFORMATION
  Report Type: 
  Country: None (occurrence: None)
  Receive Date: 20110602
  Receipt Date: 20110531
  Transmission Date: 20111010
  Serious: No
  Sender: FDA-Public Use
  Company Number: US-PFIZER INC-2011117318

PATIENT
  Sex: Female
  Weight: 75.7 kg

DRUGS (2)
  1. WELLBUTRIN [Suspect]
     Dosage: UNK
  2. PRISTIQ [Suspect]
     Indication: DEPRESSION
     Dosage: 50 MG, DAILY
     Route: 048

REACTIONS (3)
  - WITHDRAWAL SYNDROME [None]
  - TINNITUS [None]
  - WEIGHT INCREASED [None]
